FAERS Safety Report 11208156 (Version 1)
Quarter: 2015Q2

REPORT INFORMATION
  Report Type: Spontaneous
  Country: US (occurrence: None)
  Receive Date: 20150619
  Receipt Date: 20150619
  Transmission Date: 20150821
  Serious: Yes (Hospitalization)
  Sender: FDA-Public Use
  Company Number: None

PATIENT
  Age: 52 Year
  Sex: Female
  Weight: 75.3 kg

DRUGS (11)
  1. LYRICA [Concomitant]
     Active Substance: PREGABALIN
  2. MORPHINE [Suspect]
     Active Substance: MORPHINE
     Dosage: THERAPY?RECENT
  3. ROMYCIN [Concomitant]
  4. METHADONE [Concomitant]
     Active Substance: METHADONE HYDROCHLORIDE
  5. VERSED [Suspect]
     Active Substance: MIDAZOLAM HYDROCHLORIDE
     Indication: SEDATION
  6. METHADONE [Suspect]
     Active Substance: METHADONE HYDROCHLORIDE
     Dosage: THERAPY?RECENT
     Route: 048
  7. METHYPREDNISOLONE [Concomitant]
     Active Substance: METHYLPREDNISOLONE
  8. FENTANYL. [Suspect]
     Active Substance: FENTANYL
     Indication: SEDATION
  9. GLUCOPHAGE [Concomitant]
     Active Substance: METFORMIN HYDROCHLORIDE
  10. ELAVIL [Concomitant]
     Active Substance: AMITRIPTYLINE HYDROCHLORIDE
  11. KEFLEX [Concomitant]
     Active Substance: CEPHALEXIN

REACTIONS (8)
  - Sleep apnoea syndrome [None]
  - Overdose [None]
  - Hypercapnia [None]
  - Agitation [None]
  - Hypopnoea [None]
  - Depressed level of consciousness [None]
  - Pain in extremity [None]
  - Hypoxia [None]

NARRATIVE: CASE EVENT DATE: 20141028
